FAERS Safety Report 7130879 (Version 2)
Quarter: 2012Q4

REPORT INFORMATION
  Report Type: 
  Country: US (occurrence: US)
  Receive Date: 20090925
  Receipt Date: 20121015
  Transmission Date: 20130627
  Serious: Yes (Other)
  Sender: FDA-Public Use
  Company Number: US-PFIZER INC-2009271170

PATIENT
  Age: 57 Year
  Sex: Female

DRUGS (6)
  1. PROVERA [Suspect]
     Indication: HORMONE REPLACEMENT THERAPY
     Dosage: 2.5 mg, 1x/day
     Route: 048
     Dates: start: 200303, end: 200304
  2. PREMARIN [Suspect]
     Indication: HORMONE REPLACEMENT THERAPY
     Dosage: 0.3 mg, 1x/day
     Route: 048
     Dates: start: 200303, end: 2003
  3. PREMPRO [Suspect]
     Indication: HORMONE REPLACEMENT THERAPY
     Dosage: 0.625 mg, 2.5 mg
     Route: 048
     Dates: start: 19960521, end: 200303
  4. MEDROXYPROGESTERONE ACETATE [Suspect]
     Indication: HORMONE REPLACEMENT THERAPY
     Dosage: 2.5 mg, 1x/day
     Route: 048
     Dates: start: 200303, end: 2003
  5. ESTROGEN NOS [Suspect]
     Indication: HORMONE REPLACEMENT THERAPY
     Dosage: UNK
     Route: 048
  6. LOPRESSOR [Concomitant]
     Indication: HYPERTENSION
     Dosage: UNK
     Dates: start: 1987

REACTIONS (1)
  - Breast cancer female [Unknown]
